FAERS Safety Report 18142078 (Version 28)
Quarter: 2025Q2

REPORT INFORMATION
  Report Type: Spontaneous
  Country: US (occurrence: US)
  Receive Date: 20200812
  Receipt Date: 20250515
  Transmission Date: 20250716
  Serious: Yes (Other)
  Sender: PFIZER
  Company Number: US-PFIZER INC-2020306384

PATIENT
  Age: 86 Year
  Sex: Female
  Weight: 44.354 kg

DRUGS (14)
  1. IBRANCE [Suspect]
     Active Substance: PALBOCICLIB
     Indication: Breast cancer female
     Dates: start: 201911
  2. IBRANCE [Suspect]
     Active Substance: PALBOCICLIB
     Dates: start: 20200130
  3. IBRANCE [Suspect]
     Active Substance: PALBOCICLIB
     Dates: start: 20200609
  4. IBRANCE [Suspect]
     Active Substance: PALBOCICLIB
     Dosage: 100 MG, DAILY
     Dates: start: 202103
  5. IBRANCE [Suspect]
     Active Substance: PALBOCICLIB
     Route: 048
     Dates: start: 20211008
  6. IBRANCE [Suspect]
     Active Substance: PALBOCICLIB
  7. IBRANCE [Suspect]
     Active Substance: PALBOCICLIB
     Route: 048
  8. IBRANCE [Suspect]
     Active Substance: PALBOCICLIB
     Route: 048
  9. IBRANCE [Suspect]
     Active Substance: PALBOCICLIB
     Dosage: 75 MG, DAILY (TAKE 1 TAB QD (EVERY DAY))
     Route: 048
  10. IBRANCE [Suspect]
     Active Substance: PALBOCICLIB
     Dosage: 75 MG, DAILY
  11. IBRANCE [Suspect]
     Active Substance: PALBOCICLIB
     Route: 048
  12. IBRANCE [Suspect]
     Active Substance: PALBOCICLIB
     Route: 048
  13. FASLODEX [Concomitant]
     Active Substance: FULVESTRANT
     Dates: start: 201911
  14. FASLODEX [Concomitant]
     Active Substance: FULVESTRANT
     Dates: start: 20211008

REACTIONS (18)
  - Neutropenia [Recovering/Resolving]
  - Hip surgery [Unknown]
  - Thrombocytopenia [Unknown]
  - Myelosuppression [Not Recovered/Not Resolved]
  - Cytopenia [Not Recovered/Not Resolved]
  - Deep vein thrombosis [Unknown]
  - Anaemia [Recovering/Resolving]
  - Off label use [Unknown]
  - Fatigue [Unknown]
  - Alopecia [Unknown]
  - Toxicity to various agents [Unknown]
  - Depression [Unknown]
  - White blood cell disorder [Not Recovered/Not Resolved]
  - Haemoglobin abnormal [Not Recovered/Not Resolved]
  - Platelet count abnormal [Not Recovered/Not Resolved]
  - Memory impairment [Unknown]
  - Pleural effusion [Unknown]
  - Red blood cell count decreased [Unknown]

NARRATIVE: CASE EVENT DATE: 20190101
